FAERS Safety Report 14181436 (Version 1)
Quarter: 2017Q4

REPORT INFORMATION
  Report Type: Spontaneous
  Country: US (occurrence: US)
  Receive Date: 20171111
  Receipt Date: 20171111
  Transmission Date: 20180321
  Serious: Yes (Other)
  Sender: FDA-Public Use
  Company Number: None

PATIENT
  Age: 28 Year
  Sex: Female
  Weight: 58.5 kg

DRUGS (3)
  1. ABILIFY [Suspect]
     Active Substance: ARIPIPRAZOLE
     Indication: DEPRESSION
     Route: 058
     Dates: start: 20150501, end: 20160501
  2. ABILIFY [Suspect]
     Active Substance: ARIPIPRAZOLE
     Indication: ANXIETY
     Route: 058
     Dates: start: 20150501, end: 20160501
  3. ABILIFY [Suspect]
     Active Substance: ARIPIPRAZOLE
     Indication: BIPOLAR DISORDER
     Route: 058
     Dates: start: 20150501, end: 20160501

REACTIONS (3)
  - Loss of personal independence in daily activities [None]
  - Impaired work ability [None]
  - Tremor [None]

NARRATIVE: CASE EVENT DATE: 20160501
